FAERS Safety Report 8392371-9 (Version None)
Quarter: 2012Q2

REPORT INFORMATION
  Report Type: 
  Country: None (occurrence: None)
  Receive Date: 20120529
  Receipt Date: 20120521
  Transmission Date: 20120825
  Serious: Yes (Hospitalization)
  Sender: FDA-Public Use
  Company Number: US-ACTELION-A-NJ2012-61250

PATIENT

DRUGS (2)
  1. TRACLEER [Suspect]
     Indication: PULMONARY ARTERIAL HYPERTENSION
     Dosage: UNK
     Route: 048
     Dates: start: 20110630
  2. PRADAXA [Concomitant]

REACTIONS (7)
  - DIZZINESS POSTURAL [None]
  - CARDIAC PACEMAKER INSERTION [None]
  - ATRIAL FIBRILLATION [None]
  - ATRIAL FLUTTER [None]
  - LOSS OF CONSCIOUSNESS [None]
  - DIZZINESS [None]
  - BALANCE DISORDER [None]
